FAERS Safety Report 10059480 (Version 1)
Quarter: 2014Q2

REPORT INFORMATION
  Report Type: Spontaneous
  Country: BR (occurrence: BR)
  Receive Date: 20140404
  Receipt Date: 20140404
  Transmission Date: 20141212
  Serious: Yes (Other)
  Sender: FDA-Public Use
  Company Number: BR-PFIZER INC-2014092681

PATIENT
  Age: 67 Year
  Sex: Female
  Weight: 66 kg

DRUGS (4)
  1. LIPITOR [Suspect]
     Indication: BLOOD CHOLESTEROL ABNORMAL
     Dosage: 20 MG (ONE TABLET), 1X/DAY
     Route: 048
     Dates: start: 2011
  2. LIPITOR [Suspect]
     Dosage: 10 MG (ONE TABLET), 1X/DAY
     Route: 048
     Dates: end: 20140325
  3. GLIFAGE XR [Concomitant]
     Indication: BLOOD GLUCOSE ABNORMAL
     Dosage: 3 TABLETS OF 500MG, DAILY
     Dates: start: 2009
  4. PANTOPRAZOLE [Concomitant]
     Indication: PROPHYLAXIS
     Dosage: 1 TABLET OF UNSPECIFIED DOSAGE, DAILY

REACTIONS (2)
  - Angiopathy [Unknown]
  - Cardiac disorder [Unknown]
